FAERS Safety Report 13277751 (Version 4)
Quarter: 2017Q2

REPORT INFORMATION
  Report Type: Report from Study
  Country: US (occurrence: US)
  Receive Date: 20170228
  Receipt Date: 20170522
  Transmission Date: 20170830
  Serious: Yes (Hospitalization)
  Sender: FDA-Public Use
  Company Number: US-JNJFOC-20170226170

PATIENT
  Age: 86 Year
  Sex: Female

DRUGS (16)
  1. VITAMIN D [Concomitant]
     Active Substance: CHOLECALCIFEROL
  2. LASIX [Concomitant]
     Active Substance: FUROSEMIDE
  3. TOPROL XL [Concomitant]
     Active Substance: METOPROLOL SUCCINATE
  4. IMBRUVICA [Suspect]
     Active Substance: IBRUTINIB
     Indication: CHRONIC LYMPHOCYTIC LEUKAEMIA
     Route: 048
     Dates: start: 20160818
  5. IMBRUVICA [Suspect]
     Active Substance: IBRUTINIB
     Indication: CHRONIC LYMPHOCYTIC LEUKAEMIA
     Route: 048
     Dates: start: 20161014
  6. ZETIA [Concomitant]
     Active Substance: EZETIMIBE
  7. METAMUCIL REGULAR [Concomitant]
  8. ELIQUIS [Concomitant]
     Active Substance: APIXABAN
  9. MYLANTA [Concomitant]
     Active Substance: ALUMINUM HYDROXIDE\DIMETHICONE\MAGNESIUM HYDROXIDE
  10. FOLIC ACID. [Concomitant]
     Active Substance: FOLIC ACID
  11. VITAMINE C [Concomitant]
     Active Substance: ASCORBIC ACID
  12. BENICAR [Concomitant]
     Active Substance: OLMESARTAN MEDOXOMIL
  13. CYPROHEPTADINE. [Concomitant]
     Active Substance: CYPROHEPTADINE
  14. CALCIUM [Concomitant]
     Active Substance: CALCIUM
  15. PREDNISONE. [Concomitant]
     Active Substance: PREDNISONE
  16. ASPIRIN. [Concomitant]
     Active Substance: ASPIRIN

REACTIONS (5)
  - Pneumonia [Unknown]
  - Urinary tract infection [Unknown]
  - Arthralgia [Unknown]
  - Pulmonary thrombosis [Recovered/Resolved]
  - Heart rate irregular [Recovered/Resolved]

NARRATIVE: CASE EVENT DATE: 20170120
